FAERS Safety Report 24747891 (Version 2)
Quarter: 2025Q1

REPORT INFORMATION
  Report Type: Spontaneous
  Country: AE (occurrence: AE)
  Receive Date: 20241218
  Receipt Date: 20250314
  Transmission Date: 20250409
  Serious: Yes (Other)
  Sender: BRISTOL-MYERS SQUIBB COMPANY
  Company Number: AE-BRISTOL-MYERS SQUIBB COMPANY-2024-194980

PATIENT
  Sex: Female

DRUGS (1)
  1. REBLOZYL [Suspect]
     Active Substance: LUSPATERCEPT-AAMT
     Indication: Thalassaemia beta

REACTIONS (2)
  - Thrombocytopenia [Unknown]
  - Foreign body [Unknown]

NARRATIVE: CASE EVENT DATE: 20240101
